FAERS Safety Report 6617003-9 (Version None)
Quarter: 2010Q1

REPORT INFORMATION
  Report Type: 
  Country: None (occurrence: None)
  Receive Date: 20100302
  Receipt Date: 20090310
  Transmission Date: 20100710
  Serious: Yes (Other)
  Sender: FDA-Public Use
  Company Number: 2009-2381

PATIENT
  Age: 25 Year
  Sex: Male

DRUGS (1)
  1. APOKYN [Suspect]
     Indication: DEPRESSED LEVEL OF CONSCIOUSNESS
     Dosage: SEE IMAGE
     Route: 058
     Dates: start: 20041203

REACTIONS (4)
  - DYSKINESIA [None]
  - HALLUCINATION [None]
  - OFF LABEL USE [None]
  - SPONTANEOUS PENILE ERECTION [None]
